APPROVED DRUG PRODUCT: XANAX
Active Ingredient: ALPRAZOLAM
Strength: 2MG
Dosage Form/Route: TABLET;ORAL
Application: N018276 | Product #004 | TE Code: AB
Applicant: UPJOHN US 2 LLC
Approved: Nov 27, 1985 | RLD: Yes | RS: No | Type: RX